FAERS Safety Report 5932826-7 (Version None)
Quarter: 2008Q4

REPORT INFORMATION
  Report Type: 
  Country: None (occurrence: None)
  Receive Date: 20081027
  Receipt Date: 20081027
  Transmission Date: 20090506
  Serious: Yes (Hospitalization)
  Sender: FDA-Public Use
  Company Number: None

PATIENT
  Sex: Female
  Weight: 49.9 kg

DRUGS (6)
  1. FLUOROURACIL [Suspect]
     Dosage: 14868 MG
     Dates: end: 20081014
  2. ERBITUX [Suspect]
     Dosage: 2730 MG
     Dates: end: 20081014
  3. CAMPTOSAR [Suspect]
     Dosage: 980 MG
     Dates: end: 20081014
  4. LEUCOVORIN CALCIUM [Suspect]
     Dosage: 2488 MG
     Dates: end: 20081014
  5. MAGNESIUM SULFATE [Concomitant]
  6. POTASSIUM CHLORIDE [Concomitant]

REACTIONS (1)
  - HYPOKALAEMIA [None]
